FAERS Safety Report 13798990 (Version 1)
Quarter: 2017Q3

REPORT INFORMATION
  Report Type: Spontaneous
  Country: US (occurrence: US)
  Receive Date: 20170727
  Receipt Date: 20170727
  Transmission Date: 20171127
  Serious: No
  Sender: FDA-Public Use
  Company Number: US-JNJFOC-20170600867

PATIENT
  Age: 92 Year
  Sex: Female
  Weight: 58.06 kg

DRUGS (3)
  1. ZYRTEC-D [Suspect]
     Active Substance: CETIRIZINE HYDROCHLORIDE\PSEUDOEPHEDRINE HYDROCHLORIDE
     Indication: LACRIMATION INCREASED
     Dosage: 2 TABLETS
     Route: 048
     Dates: start: 20170531
  2. ZYRTEC-D [Suspect]
     Active Substance: CETIRIZINE HYDROCHLORIDE\PSEUDOEPHEDRINE HYDROCHLORIDE
     Indication: VIRAL UPPER RESPIRATORY TRACT INFECTION
     Dosage: 2 TABLETS
     Route: 048
     Dates: start: 20170531
  3. ZYRTEC-D [Suspect]
     Active Substance: CETIRIZINE HYDROCHLORIDE\PSEUDOEPHEDRINE HYDROCHLORIDE
     Indication: NASAL PRURITUS
     Dosage: 2 TABLETS
     Route: 048
     Dates: start: 20170531

REACTIONS (5)
  - Incorrect dose administered [Unknown]
  - Drug administration error [Unknown]
  - Product use in unapproved indication [Unknown]
  - Therapeutic response unexpected [Unknown]
  - Expired product administered [Unknown]

NARRATIVE: CASE EVENT DATE: 20170531
